FAERS Safety Report 7033621-0 (Version None)
Quarter: 2010Q4

REPORT INFORMATION
  Report Type: 
  Country: None (occurrence: None)
  Receive Date: 20101007
  Receipt Date: 20100929
  Transmission Date: 20110411
  Serious: Yes (Life-Threatening, Other)
  Sender: FDA-Public Use
  Company Number: AU-PURDUE-USA-2010-0047923

PATIENT
  Sex: Female

DRUGS (1)
  1. OXYNORM (NDA 22-272) [Suspect]
     Indication: BACK PAIN
     Route: 048

REACTIONS (12)
  - ALTERED STATE OF CONSCIOUSNESS [None]
  - DIZZINESS [None]
  - DRUG DEPENDENCE [None]
  - DRUG WITHDRAWAL SYNDROME [None]
  - HEART RATE INCREASED [None]
  - INTENTIONAL OVERDOSE [None]
  - MALAISE [None]
  - PAIN [None]
  - SOMNOLENCE [None]
  - SUICIDAL IDEATION [None]
  - VOMITING [None]
  - WEIGHT FLUCTUATION [None]
